FAERS Safety Report 6524438-1 (Version None)
Quarter: 2010Q1

REPORT INFORMATION
  Report Type: 
  Country: None (occurrence: None)
  Receive Date: 20100104
  Receipt Date: 20091222
  Transmission Date: 20100710
  Serious: Yes (Other)
  Sender: FDA-Public Use
  Company Number: GB-RANBAXY-2008RR-16867

PATIENT
  Sex: Female
  Weight: 65 kg

DRUGS (2)
  1. ISOTRETINOIN [Suspect]
     Indication: ACNE
     Dosage: 4 MG, UNK
     Route: 048
     Dates: start: 20080407, end: 20080620
  2. NORDETTE-28 [Suspect]
     Indication: CONTRACEPTION
     Route: 048

REACTIONS (4)
  - ABORTION INDUCED [None]
  - DRUG EXPOSURE DURING PREGNANCY [None]
  - PREGNANCY ON ORAL CONTRACEPTIVE [None]
  - URINARY TRACT INFECTION [None]
